FAERS Safety Report 5574688-6 (Version None)
Quarter: 2007Q4

REPORT INFORMATION
  Report Type: 
  Country: None (occurrence: None)
  Receive Date: 20071226
  Receipt Date: 20071226
  Transmission Date: 20080405
  Serious: Yes (Life-Threatening)
  Sender: FDA-Public Use
  Company Number: None

PATIENT
  Age: 75 Year
  Sex: Female
  Weight: 48.5349 kg

DRUGS (1)
  1. COUMADIN [Suspect]
     Indication: MYOCARDIAL INFARCTION
     Dosage: 1+ A HALF TABLETS AS DIRECTED
     Dates: start: 20020604, end: 20071224

REACTIONS (1)
  - MYOCARDIAL INFARCTION [None]
